FAERS Safety Report 20214403 (Version 1)
Quarter: 2021Q4

REPORT INFORMATION
  Report Type: Spontaneous
  Country: US (occurrence: US)
  Receive Date: 20211221
  Receipt Date: 20211221
  Transmission Date: 20220303
  Serious: No
  Sender: FDA-Public Use
  Company Number: US-SEATTLE GENETICS-2021SGN06080

PATIENT
  Sex: Female

DRUGS (1)
  1. TIVDAK [Suspect]
     Active Substance: TISOTUMAB VEDOTIN-TFTV
     Indication: Cervix carcinoma
     Dosage: UNK

REACTIONS (4)
  - Proctalgia [Unknown]
  - Eye pain [Unknown]
  - Alopecia [Unknown]
  - Dry eye [Unknown]

NARRATIVE: CASE EVENT DATE: 20211123
